FAERS Safety Report 8367100-5 (Version None)
Quarter: 2012Q1

REPORT INFORMATION
  Report Type: 
  Country: None (occurrence: None)
  Receive Date: 20120323
  Receipt Date: 20111026
  Transmission Date: 20120608
  Serious: Yes (Disabling)
  Sender: FDA-Public Use
  Company Number: 163-21880-11073251

PATIENT
  Age: 76 Year
  Sex: Female

DRUGS (2)
  1. REVLIMID [Suspect]
     Indication: MULTIPLE MYELOMA
     Dosage: 25 MG, DAILY FOR 3 WEEKS THEN 7 DAYS OFF, PO; 25 MG, QD X 21 DAYS ON, 7 DAYS OFF, PO
     Route: 048
     Dates: start: 20110223, end: 20110722
  2. REVLIMID [Suspect]
     Indication: MULTIPLE MYELOMA
     Dosage: 25 MG, DAILY FOR 3 WEEKS THEN 7 DAYS OFF, PO; 25 MG, QD X 21 DAYS ON, 7 DAYS OFF, PO
     Route: 048
     Dates: start: 20111003, end: 20111024

REACTIONS (3)
  - BLISTER [None]
  - RASH PRURITIC [None]
  - OEDEMA PERIPHERAL [None]
